FAERS Safety Report 5607114-9 (Version None)
Quarter: 2008Q1

REPORT INFORMATION
  Report Type: 
  Country: None (occurrence: None)
  Receive Date: 20080129
  Receipt Date: 20080117
  Transmission Date: 20080703
  Serious: Yes (Life-Threatening, Hospitalization, Disabling)
  Sender: FDA-Public Use
  Company Number: FR-PFIZER INC-2008006304

PATIENT
  Sex: Male

DRUGS (4)
  1. GENOTONORM [Suspect]
     Indication: HYPOPITUITARISM
     Dates: start: 20050517, end: 20070424
  2. LEVOTHYROX [Concomitant]
  3. HYDROCORTISONE [Concomitant]
  4. ANDROTARDYL [Concomitant]

REACTIONS (1)
  - BRAIN STEM GLIOMA [None]
